FAERS Safety Report 18960026 (Version 3)
Quarter: 2021Q3

REPORT INFORMATION
  Report Type: Report from Study
  Country: GB (occurrence: GB)
  Receive Date: 20210302
  Receipt Date: 20210809
  Transmission Date: 20211014
  Serious: Yes (Other)
  Sender: FDA-Public Use
  Company Number: GB-MYLANLABS-2021M1011914

PATIENT
  Age: 52 Year
  Sex: Female

DRUGS (52)
  1. TRASTUZUMAB. [Suspect]
     Active Substance: TRASTUZUMAB
     Dosage: 600 MILLIGRAM, Q3W
     Route: 058
     Dates: start: 20200619
  2. COCODAMOL [Concomitant]
     Active Substance: ACETAMINOPHEN\CODEINE PHOSPHATE
     Indication: PRODUCT USED FOR UNKNOWN INDICATION
     Dosage: UNK UNK, PRN
     Route: 048
     Dates: start: 20190719
  3. ESTRIOL [Concomitant]
     Active Substance: ESTRIOL
     Indication: PRODUCT USED FOR UNKNOWN INDICATION
     Dosage: 0.1 PERCENT
     Route: 067
     Dates: start: 20150415
  4. PIRITON [Concomitant]
     Active Substance: CHLORPHENIRAMINE MALEATE
     Dosage: UNK UNK, QD
     Route: 048
     Dates: start: 20170503, end: 20170503
  5. ALMOND OIL [Concomitant]
     Active Substance: ALMOND OIL
     Dosage: UNK UNK, QD
     Route: 061
     Dates: start: 20191219, end: 20191219
  6. EURAX [Concomitant]
     Active Substance: CROTAMITON
     Dosage: UNK UNK, PRN/AS NEEDED
     Route: 061
     Dates: start: 20190516, end: 201906
  7. MOMETASONE [Concomitant]
     Active Substance: MOMETASONE
     Dosage: UNK UNK, QD
     Route: 065
     Dates: start: 20120925
  8. CHLORHEXIDINE [Concomitant]
     Active Substance: CHLORHEXIDINE
     Indication: PRODUCT USED FOR UNKNOWN INDICATION
     Dosage: 10 MILLILITER
     Dates: start: 20200710
  9. LAVENDER OIL [Concomitant]
     Active Substance: LAVENDER OIL
     Indication: PRODUCT USED FOR UNKNOWN INDICATION
     Dosage: UNK UNK, QD
     Route: 061
     Dates: start: 20200617, end: 20200617
  10. SODIUM HYALURONATE [Concomitant]
     Active Substance: HYALURONATE SODIUM
     Indication: PRODUCT USED FOR UNKNOWN INDICATION
     Dosage: UNK
     Route: 047
     Dates: start: 20191029
  11. HYALURONIC ACID [Concomitant]
     Active Substance: HYALURONIC ACID
     Indication: PRODUCT USED FOR UNKNOWN INDICATION
     Dosage: UNK
     Route: 061
     Dates: start: 20180226
  12. DOCETAXEL. [Suspect]
     Active Substance: DOCETAXEL
     Indication: PRODUCT USED FOR UNKNOWN INDICATION
     Dosage: 180 MILLIGRAM, Q3W
     Route: 042
     Dates: start: 20151231, end: 20160212
  13. DOCETAXEL. [Suspect]
     Active Substance: DOCETAXEL
     Dosage: 180 MILLIGRAM, Q3W
     Route: 042
     Dates: start: 20210212
  14. DEXAFREE [Concomitant]
     Active Substance: DEXAMETHASONE SODIUM PHOSPHATE
     Indication: PRODUCT USED FOR UNKNOWN INDICATION
     Dosage: 1 GTT DROPS, BID
     Route: 047
     Dates: start: 20191119, end: 20191126
  15. HYPROMELLOSE [Concomitant]
     Active Substance: HYPROMELLOSES
     Indication: PRODUCT USED FOR UNKNOWN INDICATION
     Dosage: UNK
     Route: 065
     Dates: start: 20160831
  16. PARAFFIN WHITE [Concomitant]
     Dosage: AS NEEDED
     Route: 061
     Dates: start: 20180403
  17. PIRITON [Concomitant]
     Active Substance: CHLORPHENIRAMINE MALEATE
     Dosage: 4 MILLIGRAM, QD
     Route: 048
     Dates: start: 201904, end: 20190502
  18. EUMOVATE [Concomitant]
     Active Substance: CLOBETASONE BUTYRATE
     Indication: PRODUCT USED FOR UNKNOWN INDICATION
     Dosage: UNK UNK, PRN/AS NEEDED
     Route: 061
     Dates: start: 201904, end: 20190502
  19. FEXOFENADINE [Concomitant]
     Active Substance: FEXOFENADINE HYDROCHLORIDE
     Indication: PRODUCT USED FOR UNKNOWN INDICATION
     Dosage: 180 MILLIGRAM, QD
     Route: 048
     Dates: start: 20170504, end: 20170519
  20. OMEPRAZOLE. [Concomitant]
     Active Substance: OMEPRAZOLE
     Indication: PRODUCT USED FOR UNKNOWN INDICATION
     Dosage: 20 MILLIGRAM
     Route: 048
     Dates: start: 20160212
  21. PIRITON [Concomitant]
     Active Substance: CHLORPHENIRAMINE MALEATE
     Dosage: 4 MILLIGRAM, MONTHLY
     Route: 048
     Dates: start: 201904, end: 20190502
  22. SALBUTAMOL [Concomitant]
     Active Substance: ALBUTEROL
     Indication: PRODUCT USED FOR UNKNOWN INDICATION
     Dosage: UNK
     Route: 065
     Dates: start: 20000418
  23. SYMBICORT [Concomitant]
     Active Substance: BUDESONIDE\FORMOTEROL FUMARATE DIHYDRATE
     Dosage: UNK UNK, BID
     Route: 055
     Dates: start: 20190720
  24. DOCETAXEL. [Suspect]
     Active Substance: DOCETAXEL
     Dosage: 180 MILLIGRAM, Q3W
     Dates: start: 20160212
  25. TRASTUZUMAB. [Suspect]
     Active Substance: TRASTUZUMAB
     Indication: BREAST CANCER METASTATIC
     Dosage: 600 MILLIGRAM, Q3W
     Route: 058
     Dates: start: 20151231
  26. ACICLOVIR [Concomitant]
     Active Substance: ACYCLOVIR
     Dosage: 15 MILLIGRAM
     Dates: start: 20200710
  27. EURAX [Concomitant]
     Active Substance: CROTAMITON
     Dosage: UNK UNK, BID
     Route: 061
     Dates: start: 20200109
  28. FEXOFENADINE [Concomitant]
     Active Substance: FEXOFENADINE HYDROCHLORIDE
     Dosage: 180 MILLIGRAM
     Route: 048
     Dates: start: 20190516
  29. SALBUTAMOL [Concomitant]
     Active Substance: ALBUTEROL
     Dosage: 2 PUFF AS NEEDED
     Route: 065
     Dates: start: 20000413
  30. TEA TREE OIL. [Concomitant]
     Active Substance: TEA TREE OIL
     Indication: PRODUCT USED FOR UNKNOWN INDICATION
     Dosage: UNK
     Route: 047
     Dates: start: 20191029, end: 20191031
  31. NITROFURANTOIN. [Concomitant]
     Active Substance: NITROFURANTOIN
     Indication: PRODUCT USED FOR UNKNOWN INDICATION
     Dosage: 100 MILLIGRAM
     Route: 048
     Dates: start: 20200407, end: 20200410
  32. LETROZOLE. [Suspect]
     Active Substance: LETROZOLE
     Indication: PRODUCT USED FOR UNKNOWN INDICATION
     Dosage: 2.5 MILLIGRAM, QD
     Route: 048
     Dates: start: 20160407
  33. PACLITAXEL. [Suspect]
     Active Substance: PACLITAXEL
     Indication: PRODUCT USED FOR UNKNOWN INDICATION
     Dosage: 111 GRAM, Q3W
     Route: 042
     Dates: start: 20160311, end: 20160324
  34. ACICLOVIR [Concomitant]
     Active Substance: ACYCLOVIR
     Dosage: UNK, BID
     Route: 048
     Dates: start: 20190606, end: 20190627
  35. CETIRIZINE [Concomitant]
     Active Substance: CETIRIZINE HYDROCHLORIDE
     Dosage: DAILY AS NEEDED
     Route: 048
     Dates: start: 20170911
  36. ALMOND OIL [Concomitant]
     Active Substance: ALMOND OIL
     Dosage: UNK UNK, QD
     Route: 061
     Dates: start: 20200117, end: 20200117
  37. SYMBICORT [Concomitant]
     Active Substance: BUDESONIDE\FORMOTEROL FUMARATE DIHYDRATE
     Dosage: UNK
     Route: 065
     Dates: start: 20151115
  38. DEXAFREE [Concomitant]
     Active Substance: DEXAMETHASONE SODIUM PHOSPHATE
     Dosage: 1 GTT DROPS, QD
     Route: 047
     Dates: start: 20191127
  39. PEPPERMINT OIL [Concomitant]
     Active Substance: PEPPERMINT OIL
     Indication: PRODUCT USED FOR UNKNOWN INDICATION
     Dosage: UNK UNK, QD
     Route: 061
     Dates: start: 20191219, end: 20191219
  40. EVENING PRIMROSE OIL [Concomitant]
     Active Substance: EVENING PRIMROSE OIL\HERBALS
     Dosage: UNK, QD
     Route: 048
     Dates: start: 2017
  41. SYSTANE (HYPROMELLOSE 2910 (4000 MPA.S)) [Concomitant]
     Active Substance: HYPROMELLOSE 2910 (4000 MPA.S)
     Indication: PRODUCT USED FOR UNKNOWN INDICATION
     Dosage: 1 GTT DROPS, PRN/AS NEEDED
     Route: 047
  42. HYDROCORTISONE. [Concomitant]
     Active Substance: HYDROCORTISONE
     Indication: PRODUCT USED FOR UNKNOWN INDICATION
     Dosage: 2.5 MILLIGRAM, QID
     Route: 002
     Dates: start: 20200610
  43. METOCLOPRAMIDE. [Concomitant]
     Active Substance: METOCLOPRAMIDE
     Indication: PRODUCT USED FOR UNKNOWN INDICATION
     Dosage: 10 MILLIGRAM
     Route: 048
     Dates: start: 20200619
  44. CARBOMER [Concomitant]
     Active Substance: CARBOMER
     Dosage: 1 GTT DROPS, PRN/AS NEEDED/DROP (1/12 MILLILITRE))
     Route: 047
     Dates: start: 20160706
  45. CLOBETASONE [Concomitant]
     Active Substance: CLOBETASONE
     Indication: PRODUCT USED FOR UNKNOWN INDICATION
     Dosage: UNK
     Route: 061
  46. EUCALYPTUS OIL [Concomitant]
     Active Substance: EUCALYPTUS OIL
     Indication: PRODUCT USED FOR UNKNOWN INDICATION
     Dosage: UNK UNK, QD
     Route: 061
     Dates: start: 20191219, end: 20191219
  47. FEXOFENADINE [Concomitant]
     Active Substance: FEXOFENADINE HYDROCHLORIDE
     Dosage: 180 MILLIGRAM, PRN/AS NEEDED
     Route: 048
     Dates: start: 20180222, end: 20180422
  48. FEXOFENADINE [Concomitant]
     Active Substance: FEXOFENADINE HYDROCHLORIDE
     Dosage: 180 MILLIGRAM, PRN/AS NEEDED
     Route: 048
     Dates: start: 20190516
  49. LOPERAMIDE [Concomitant]
     Active Substance: LOPERAMIDE
     Indication: DIARRHOEA
     Dosage: UNK UNK, QD
     Route: 048
     Dates: start: 20150415
  50. LOPERAMIDE [Concomitant]
     Active Substance: LOPERAMIDE
     Dosage: 2 MILLIGRAM
     Route: 048
     Dates: start: 20200619
  51. PARACETAMOL [Concomitant]
     Active Substance: ACETAMINOPHEN
     Indication: PRODUCT USED FOR UNKNOWN INDICATION
     Dosage: 1 GRAM
     Route: 048
     Dates: start: 2017
  52. PIRITON [Concomitant]
     Active Substance: CHLORPHENIRAMINE MALEATE
     Dosage: 4 MILLIGRAM, 4?6 HOURLY
     Route: 048
     Dates: start: 20190502, end: 20190515

REACTIONS (10)
  - Nausea [Recovered/Resolved]
  - Fatigue [Recovered/Resolved]
  - Skin ulcer [Recovered/Resolved]
  - Abdominal pain [Recovered/Resolved]
  - Pain [Recovered/Resolved]
  - Extravasation [Recovered/Resolved]
  - Nail disorder [Unknown]
  - Alopecia [Recovered/Resolved]
  - Neuropathy peripheral [Recovered/Resolved]
  - Mass [Recovered/Resolved]

NARRATIVE: CASE EVENT DATE: 20160211
